FAERS Safety Report 12267643 (Version 2)
Quarter: 2016Q2

REPORT INFORMATION
  Report Type: Spontaneous
  Country: US (occurrence: US)
  Receive Date: 20160414
  Receipt Date: 20160414
  Transmission Date: 20160815
  Serious: No
  Sender: FDA-Public Use
  Company Number: US-GLAXOSMITHKLINE-A0982353A

PATIENT
  Age: 50 Year
  Sex: Female
  Weight: 82.17 kg

DRUGS (5)
  1. ROYAL JELLY [Concomitant]
     Active Substance: ROYAL JELLY
  2. BENLYSTA [Suspect]
     Active Substance: BELIMUMAB
     Indication: SYSTEMIC LUPUS ERYTHEMATOSUS
     Dosage: UNK, UNK
     Route: 042
     Dates: start: 20111223
  3. NPLATE [Concomitant]
     Active Substance: ROMIPLOSTIM
  4. CALCIUM WITH VITAMIN D [Concomitant]
     Active Substance: CALCIUM\VITAMIN D
  5. CARMELLOSE SODIUM [Concomitant]
     Active Substance: CARBOXYMETHYLCELLULOSE SODIUM

REACTIONS (9)
  - Irritability [Recovered/Resolved]
  - Depression [Recovered/Resolved]
  - Viral infection [Not Recovered/Not Resolved]
  - Sluggishness [Recovered/Resolved]
  - Hypersensitivity [Unknown]
  - Malaise [Not Recovered/Not Resolved]
  - Ill-defined disorder [Not Recovered/Not Resolved]
  - Fatigue [Recovered/Resolved]
  - Drug ineffective [Not Recovered/Not Resolved]

NARRATIVE: CASE EVENT DATE: 20120523
